FAERS Safety Report 10109851 (Version 3)
Quarter: 2014Q4

REPORT INFORMATION
  Report Type: Spontaneous
  Country: US (occurrence: None)
  Receive Date: 20140421
  Receipt Date: 20141020
  Transmission Date: 20150528
  Serious: Yes (Other)
  Sender: FDA-Public Use
  Company Number: AEGR000361

PATIENT
  Age: 59 Year
  Sex: Female
  Weight: 83.4 kg

DRUGS (2)
  1. JUXTAPID [Suspect]
     Active Substance: LOMITAPIDE MESYLATE
     Indication: TYPE IIA HYPERLIPIDAEMIA
     Route: 048
     Dates: start: 20140226, end: 20140422
  2. NIACIN (NICOTINIC ACID) [Concomitant]

REACTIONS (4)
  - Hepatic enzyme increased [None]
  - Diarrhoea [None]
  - Inappropriate schedule of drug administration [None]
  - Nausea [None]

NARRATIVE: CASE EVENT DATE: 20140315
